FAERS Safety Report 18517822 (Version 1)
Quarter: 2020Q4

REPORT INFORMATION
  Report Type: Report from Study
  Country: US (occurrence: US)
  Receive Date: 20201118
  Receipt Date: 20201118
  Transmission Date: 20210114
  Serious: Yes (Other)
  Sender: FDA-Public Use
  Company Number: US-JNJFOC-20191035149

PATIENT
  Age: 6 Decade
  Sex: Female
  Weight: 87.62 kg

DRUGS (7)
  1. REMICADE [Suspect]
     Active Substance: INFLIXIMAB
     Indication: COLITIS ULCERATIVE
     Route: 042
     Dates: start: 20190127
  2. CALCIUM [Concomitant]
     Active Substance: CALCIUM
     Indication: COLITIS ULCERATIVE
  3. ISONIAZID. [Suspect]
     Active Substance: ISONIAZID
     Indication: MYCOBACTERIUM TUBERCULOSIS COMPLEX TEST POSITIVE
     Route: 065
  4. MESALAMINE. [Concomitant]
     Active Substance: MESALAMINE
     Indication: COLITIS ULCERATIVE
  5. VITAMIN D3 [Concomitant]
     Active Substance: CHOLECALCIFEROL
     Indication: COLITIS ULCERATIVE
  6. VITAMIN D3 [Concomitant]
     Active Substance: CHOLECALCIFEROL
     Indication: HYPOVITAMINOSIS
  7. ATENOLOL. [Concomitant]
     Active Substance: ATENOLOL
     Indication: HYPERTENSION

REACTIONS (4)
  - Cellulitis [Recovering/Resolving]
  - Hepatic enzyme increased [Recovered/Resolved]
  - Mycobacterium tuberculosis complex test positive [Unknown]
  - Eye infection [Recovering/Resolving]

NARRATIVE: CASE EVENT DATE: 2019
